FAERS Safety Report 5416307-5 (Version None)
Quarter: 2007Q3

REPORT INFORMATION
  Report Type: 
  Country: None (occurrence: None)
  Receive Date: 20070718
  Receipt Date: 20070213
  Transmission Date: 20080115
  Serious: Yes (Hospitalization, Other)
  Sender: FDA-Public Use
  Company Number: 2006030598

PATIENT
  Sex: Female

DRUGS (3)
  1. CELEBREX [Suspect]
     Indication: ARTHRALGIA
     Dosage: (200 MG, 1 D), ORAL
     Route: 048
     Dates: start: 20040923
  2. CELEBREX [Suspect]
     Indication: ARTHRITIS
     Dosage: (200 MG, 1 D), ORAL
     Route: 048
     Dates: start: 20040923
  3. VIOXX [Suspect]
     Dosage: ORAL
     Route: 048
     Dates: start: 20020128, end: 20040923

REACTIONS (2)
  - CEREBROVASCULAR ACCIDENT [None]
  - TRANSIENT ISCHAEMIC ATTACK [None]
